FAERS Safety Report 16638021 (Version 1)
Quarter: 2019Q3

REPORT INFORMATION
  Report Type: Spontaneous
  Country: US (occurrence: US)
  Receive Date: 20190726
  Receipt Date: 20190726
  Transmission Date: 20191004
  Serious: Yes (Other)
  Sender: FDA-Public Use
  Company Number: US-FRESENIUS KABI-FK201908174

PATIENT
  Sex: Female

DRUGS (1)
  1. NAROPIN [Suspect]
     Active Substance: ROPIVACAINE HYDROCHLORIDE
     Indication: PAIN MANAGEMENT
     Route: 008
     Dates: start: 201907, end: 201907

REACTIONS (1)
  - Therapeutic response decreased [Recovered/Resolved]
